FAERS Safety Report 23287841 (Version 3)
Quarter: 2024Q4

REPORT INFORMATION
  Report Type: Report from Study
  Country: BE (occurrence: BE)
  Receive Date: 20231212
  Receipt Date: 20241206
  Transmission Date: 20250115
  Serious: Yes (Other)
  Sender: AMGEN
  Company Number: BE-CHIESI-2023CHF06567

PATIENT
  Age: 27 Year
  Sex: Female

DRUGS (2)
  1. PROCYSBI [Suspect]
     Active Substance: CYSTEAMINE BITARTRATE
     Indication: Cystinosis
     Dosage: 750 MG, BID
     Route: 048
     Dates: start: 20210127
  2. Pantomed [Concomitant]
     Dosage: UNK PRIMARY DOSE
     Route: 065
     Dates: start: 2018

REACTIONS (1)
  - Hallucination [Not Recovered/Not Resolved]

NARRATIVE: CASE EVENT DATE: 20211127
